FAERS Safety Report 9407474 (Version 2)
Quarter: 2013Q3

REPORT INFORMATION
  Report Type: Spontaneous
  Country: DK (occurrence: DK)
  Receive Date: 20130718
  Receipt Date: 20130811
  Transmission Date: 20140515
  Serious: Yes (Other)
  Sender: FDA-Public Use
  Company Number: DK-MYLANLABS-2013S1014890

PATIENT
  Age: 57 Year
  Sex: Female
  Weight: 78 kg

DRUGS (1)
  1. BAKLOFEN [Suspect]
     Indication: BACK PAIN
     Dosage: DOSIS: 10MG 4 GANGE I  D?GNET, STYRKE: 10MG
     Dates: start: 20120116, end: 20120628

REACTIONS (3)
  - Retinal detachment [Recovered/Resolved]
  - Tinnitus [Not Recovered/Not Resolved]
  - Muscle disorder [Unknown]
